FAERS Safety Report 23309082 (Version 1)
Quarter: 2023Q4

REPORT INFORMATION
  Report Type: Spontaneous
  Country: US (occurrence: None)
  Receive Date: 20231215
  Receipt Date: 20231215
  Transmission Date: 20240109
  Serious: No
  Sender: FDA-Public Use
  Company Number: None

PATIENT
  Sex: Male

DRUGS (1)
  1. TRACLEER [Suspect]
     Active Substance: BOSENTAN
     Indication: Pulmonary arterial hypertension
     Dosage: 32MG BID ORAL?
     Route: 048
     Dates: start: 20230623, end: 20231125

REACTIONS (2)
  - Liver function test increased [None]
  - Liver injury [None]

NARRATIVE: CASE EVENT DATE: 20231213
